FAERS Safety Report 21233059 (Version 1)
Quarter: 2022Q3

REPORT INFORMATION
  Report Type: Spontaneous
  Country: US (occurrence: US)
  Receive Date: 20220819
  Receipt Date: 20220819
  Transmission Date: 20221027
  Serious: No
  Sender: FDA-Public Use
  Company Number: US-PFIZER INC-202201069884

PATIENT
  Age: 33 Year
  Sex: Female

DRUGS (2)
  1. PAXLOVID [Suspect]
     Active Substance: NIRMATRELVIR\RITONAVIR
     Indication: COVID-19 treatment
     Dosage: UNK
     Dates: start: 20220808, end: 20220813
  2. BUPROPION [Concomitant]
     Active Substance: BUPROPION
     Dosage: UNK

REACTIONS (2)
  - COVID-19 [Unknown]
  - Disease recurrence [Unknown]
